FAERS Safety Report 10166021 (Version 1)
Quarter: 2014Q2

REPORT INFORMATION
  Report Type: Spontaneous
  Country: ES (occurrence: ES)
  Receive Date: 20140511
  Receipt Date: 20140511
  Transmission Date: 20141212
  Serious: Yes (Other)
  Sender: FDA-Public Use
  Company Number: ES-MERCK-1405ESP004663

PATIENT
  Age: 30 Month
  Sex: Female
  Weight: 15 kg

DRUGS (1)
  1. SINGULAIR 4 MG GRANULADO [Suspect]
     Indication: BRONCHIAL OBSTRUCTION
     Route: 065
     Dates: start: 20131104, end: 20140224

REACTIONS (3)
  - Akathisia [Recovered/Resolved]
  - Irritability [Recovered/Resolved]
  - Crying [Recovered/Resolved]
